FAERS Safety Report 4781746-2 (Version None)
Quarter: 2005Q3

REPORT INFORMATION
  Report Type: 
  Country: None (occurrence: None)
  Receive Date: 20050927
  Receipt Date: 20050913
  Transmission Date: 20060218
  Serious: Yes (Hospitalization)
  Sender: FDA-Public Use
  Company Number: USA030229805

PATIENT
  Sex: Male
  Weight: 82 kg

DRUGS (5)
  1. HUMALOG [Suspect]
     Indication: DIABETES MELLITUS
     Dosage: 12 U DAY
     Dates: start: 20030101
  2. HUMULIN 70/30 [Suspect]
     Indication: DIABETES MELLITUS
     Dosage: 3 U DAY
     Dates: start: 19960101
  3. COUMADIN [Concomitant]
  4. LANTUS [Concomitant]
  5. AMIODARONE HCL [Concomitant]

REACTIONS (14)
  - BLOOD GLUCOSE DECREASED [None]
  - COLD SWEAT [None]
  - DIABETES MELLITUS INADEQUATE CONTROL [None]
  - DYSPNOEA [None]
  - FEELING ABNORMAL [None]
  - FOOD ALLERGY [None]
  - HEART RATE IRREGULAR [None]
  - HYPERHIDROSIS [None]
  - INTERVERTEBRAL DISC DISORDER [None]
  - MUSCLE DISORDER [None]
  - PAIN [None]
  - PAIN IN EXTREMITY [None]
  - PARAESTHESIA [None]
  - TREMOR [None]
